FAERS Safety Report 6647677-8 (Version None)
Quarter: 2010Q1

REPORT INFORMATION
  Report Type: 
  Country: None (occurrence: None)
  Receive Date: 20100323
  Receipt Date: 20100323
  Transmission Date: 20100710
  Serious: Yes (Other)
  Sender: FDA-Public Use
  Company Number: None

PATIENT
  Sex: Female
  Weight: 70.3075 kg

DRUGS (2)
  1. SENSIPAR [Suspect]
     Indication: BLOOD CALCIUM INCREASED
     Dosage: 30MG. ONE DAILY
     Dates: start: 20090301, end: 20100201
  2. SENSIPAR [Suspect]
     Indication: BLOOD PARATHYROID HORMONE
     Dosage: 30MG. ONE DAILY
     Dates: start: 20090301, end: 20100201

REACTIONS (2)
  - BLOOD CALCIUM INCREASED [None]
  - PAIN IN EXTREMITY [None]
